FAERS Safety Report 5487452-3 (Version None)
Quarter: 2007Q4

REPORT INFORMATION
  Report Type: 
  Country: None (occurrence: None)
  Receive Date: 20071016
  Receipt Date: 20071008
  Transmission Date: 20080405
  Serious: Yes (Hospitalization)
  Sender: FDA-Public Use
  Company Number: GB-PFIZER INC-2007005064

PATIENT
  Sex: Female
  Weight: 124 kg

DRUGS (7)
  1. SU-011,248 [Suspect]
     Indication: COLORECTAL CANCER METASTATIC
     Route: 048
  2. IRINOTECAN HCL [Suspect]
     Indication: COLORECTAL CANCER METASTATIC
     Route: 042
  3. CALCIUM FOLINATE [Suspect]
     Indication: COLORECTAL CANCER METASTATIC
     Route: 042
  4. FLUOROURACIL [Suspect]
     Indication: COLORECTAL CANCER METASTATIC
     Route: 042
  5. AMLODIPINE [Concomitant]
     Route: 048
  6. DEXAMETHASONE [Concomitant]
     Route: 048
  7. METOCLOPRAMIDE [Concomitant]
     Route: 048

REACTIONS (1)
  - INFECTION [None]
